FAERS Safety Report 15138047 (Version 4)
Quarter: 2019Q1

REPORT INFORMATION
  Report Type: Report from Study
  Country: CA (occurrence: CA)
  Receive Date: 20180712
  Receipt Date: 20190109
  Transmission Date: 20190417
  Serious: Yes (Death, Other)
  Sender: FDA-Public Use
  Company Number: CA-BRISTOL-MYERS SQUIBB COMPANY-BMS-2017-022019

PATIENT
  Age: 63 Year
  Sex: Female
  Weight: 42 kg

DRUGS (1)
  1. ABATACEPT [Suspect]
     Active Substance: ABATACEPT
     Indication: RHEUMATOID ARTHRITIS
     Dosage: 500 MG, Q4WK
     Route: 042
     Dates: start: 20161108

REACTIONS (10)
  - Deep vein thrombosis [Unknown]
  - Cough [Unknown]
  - Fluid retention [Recovered/Resolved]
  - Vocal cord disorder [Unknown]
  - Weight increased [Unknown]
  - Ill-defined disorder [Unknown]
  - Diarrhoea [Recovered/Resolved]
  - Death [Fatal]
  - Pulmonary hypertension [Unknown]
  - Nasopharyngitis [Unknown]

NARRATIVE: CASE EVENT DATE: 20170304
